FAERS Safety Report 22226055 (Version 3)
Quarter: 2023Q2

REPORT INFORMATION
  Report Type: Report from Study
  Country: US (occurrence: US)
  Receive Date: 20230419
  Receipt Date: 20230525
  Transmission Date: 20230722
  Serious: Yes (Hospitalization, Other)
  Sender: FDA-Public Use
  Company Number: US-002147023-NVSC2023US087357

PATIENT
  Sex: Female

DRUGS (25)
  1. CLOBETASOL [Suspect]
     Active Substance: CLOBETASOL
     Indication: Psoriasis
     Dosage: 0.5 %, QD
     Route: 065
  2. CLOBETASOL [Suspect]
     Active Substance: CLOBETASOL
     Indication: Psoriatic arthropathy
  3. BUPROPION [Suspect]
     Active Substance: BUPROPION
     Indication: Psoriasis
     Dosage: 75 MG
     Route: 048
  4. BUPROPION [Suspect]
     Active Substance: BUPROPION
     Indication: Psoriatic arthropathy
  5. ALPRAZOLAM [Suspect]
     Active Substance: ALPRAZOLAM
     Indication: Psoriasis
     Dosage: 1 MILLIGRAM PER MILLILITRE
     Route: 048
  6. ALPRAZOLAM [Suspect]
     Active Substance: ALPRAZOLAM
     Indication: Psoriatic arthropathy
  7. LISINOPRIL [Suspect]
     Active Substance: LISINOPRIL
     Indication: Psoriasis
     Dosage: 2.5 MG, QD
     Route: 048
  8. LISINOPRIL [Suspect]
     Active Substance: LISINOPRIL
     Indication: Psoriatic arthropathy
  9. OMEPRAZOLE [Suspect]
     Active Substance: OMEPRAZOLE
     Indication: Psoriasis
     Dosage: 10 MG, QD (DELAYED RELEASE)
     Route: 048
  10. OMEPRAZOLE [Suspect]
     Active Substance: OMEPRAZOLE
     Indication: Psoriatic arthropathy
  11. SIMVASTATIN [Suspect]
     Active Substance: SIMVASTATIN
     Indication: Psoriasis
     Dosage: UNK
     Route: 065
  12. SIMVASTATIN [Suspect]
     Active Substance: SIMVASTATIN
     Indication: Psoriatic arthropathy
  13. ASPIRIN [Suspect]
     Active Substance: ASPIRIN
     Indication: Psoriasis
     Dosage: 81 MG
     Route: 048
  14. ASPIRIN [Suspect]
     Active Substance: ASPIRIN
     Indication: Psoriatic arthropathy
  15. CRANBERRY [Suspect]
     Active Substance: CRANBERRY
     Indication: Psoriasis
     Dosage: 500 MG
     Route: 048
  16. CRANBERRY [Suspect]
     Active Substance: CRANBERRY
     Indication: Psoriatic arthropathy
  17. DICYCLOMINE [Suspect]
     Active Substance: DICYCLOMINE HYDROCHLORIDE
     Indication: Psoriasis
     Dosage: 10 MG, QD
     Route: 048
  18. DICYCLOMINE [Suspect]
     Active Substance: DICYCLOMINE HYDROCHLORIDE
     Indication: Psoriatic arthropathy
  19. HYDRALAZINE [Suspect]
     Active Substance: HYDRALAZINE HYDROCHLORIDE
     Indication: Psoriasis
     Dosage: 50 MG, QD
     Route: 048
  20. HYDRALAZINE [Suspect]
     Active Substance: HYDRALAZINE HYDROCHLORIDE
     Indication: Psoriatic arthropathy
  21. MONTELUKAST [Suspect]
     Active Substance: MONTELUKAST SODIUM
     Indication: Psoriasis
     Dosage: 4 MG, QD
     Route: 048
  22. MONTELUKAST [Suspect]
     Active Substance: MONTELUKAST SODIUM
     Indication: Psoriatic arthropathy
  23. TRAMADOL [Suspect]
     Active Substance: TRAMADOL
     Indication: Psoriasis
     Dosage: 50 MG, QD
     Route: 048
  24. TRAMADOL [Suspect]
     Active Substance: TRAMADOL
     Indication: Psoriatic arthropathy
  25. ENBREL [Suspect]
     Active Substance: ETANERCEPT
     Indication: Product used for unknown indication
     Dosage: UNK
     Route: 065

REACTIONS (8)
  - Renal failure [Unknown]
  - Respiratory distress [Unknown]
  - Internal haemorrhage [Unknown]
  - Psoriatic arthropathy [Unknown]
  - Psoriasis [Unknown]
  - Treatment failure [Unknown]
  - Rash pruritic [Unknown]
  - Product use in unapproved indication [Unknown]
